FAERS Safety Report 23231364 (Version 1)
Quarter: 2023Q4

REPORT INFORMATION
  Report Type: Report from Study
  Country: IL (occurrence: IL)
  Receive Date: 20231127
  Receipt Date: 20231127
  Transmission Date: 20240109
  Serious: Yes (Hospitalization)
  Sender: FDA-Public Use
  Company Number: IL-BAYER-2023A168474

PATIENT
  Age: 48 Year
  Sex: Male

DRUGS (3)
  1. ADEMPAS [Suspect]
     Active Substance: RIOCIGUAT
     Indication: Pulmonary hypertension
     Dosage: 2 MG
     Route: 048
     Dates: start: 20231012
  2. ELIQUIS [Concomitant]
     Active Substance: APIXABAN
  3. OPSUMIT [Concomitant]
     Active Substance: MACITENTAN

REACTIONS (1)
  - Chest pain [Not Recovered/Not Resolved]

NARRATIVE: CASE EVENT DATE: 20231122
